FAERS Safety Report 4323128-3 (Version None)
Quarter: 2004Q1

REPORT INFORMATION
  Report Type: 
  Country: None (occurrence: None)
  Receive Date: 20040322
  Receipt Date: 20040310
  Transmission Date: 20041129
  Serious: Yes (Death, Hospitalization)
  Sender: FDA-Public Use
  Company Number: USA-2003-0010449

PATIENT
  Age: 31 Year
  Sex: Female
  Weight: 57 kg

DRUGS (8)
  1. OXYCONTIN [Suspect]
     Indication: PAIN
     Dosage: 40 MG, SEE TEXT; ORAL
     Route: 048
  2. KLONOPIN [Suspect]
     Indication: PANIC DISORDER
     Dosage: 2 MG, TID; ORAL
     Route: 048
  3. CELEXA [Suspect]
     Indication: DEPRESSION
     Dosage: 20 MG, DAILY; ORAL
     Route: 048
  4. SALICYLATES (SALICYLATES) UNKNOWN [Suspect]
     Dosage: UNK, UNK, UNK, UNKNOWN
     Route: 065
  5. VITAMIN C (ASCORBIC ACID) [Concomitant]
  6. EFFEXOR [Concomitant]
  7. LORTAB [Concomitant]
  8. NORFLEX [Concomitant]

REACTIONS (15)
  - ACCIDENTAL OVERDOSE [None]
  - DEPRESSED LEVEL OF CONSCIOUSNESS [None]
  - DIZZINESS [None]
  - DRUG SCREEN POSITIVE [None]
  - DRUG TOXICITY [None]
  - GRANULOMA [None]
  - HYPERGLYCAEMIA [None]
  - LIVER DISORDER [None]
  - MULTIPLE DRUG OVERDOSE [None]
  - PAIN [None]
  - PULMONARY OEDEMA [None]
  - RASH [None]
  - SPLEEN DISORDER [None]
  - THINKING ABNORMAL [None]
  - THIRST [None]
